FAERS Safety Report 8164991-8 (Version None)
Quarter: 2012Q1

REPORT INFORMATION
  Report Type: 
  Country: None (occurrence: None)
  Receive Date: 20120227
  Receipt Date: 20120213
  Transmission Date: 20120608
  Serious: Yes (Other)
  Sender: FDA-Public Use
  Company Number: GB-AMGEN-GBRSP2012005967

PATIENT
  Sex: Male

DRUGS (1)
  1. ETANERCEPT [Suspect]
     Indication: PRODUCT USED FOR UNKNOWN INDICATION
     Dosage: UNK

REACTIONS (4)
  - LETHARGY [None]
  - HYPOTONIA [None]
  - MOOD ALTERED [None]
  - DEMYELINATION [None]
